FAERS Safety Report 7308580-3 (Version None)
Quarter: 2011Q1

REPORT INFORMATION
  Report Type: 
  Country: None (occurrence: None)
  Receive Date: 20110223
  Receipt Date: 20101206
  Transmission Date: 20110831
  Serious: No
  Sender: FDA-Public Use
  Company Number: US-BAYER-201024808NA

PATIENT
  Sex: Female

DRUGS (1)
  1. MIRENA [Suspect]
     Indication: CONTRACEPTION
     Dosage: 20 ?G/D, CONT
     Route: 015
     Dates: start: 20100422

REACTIONS (9)
  - ABDOMINAL PAIN [None]
  - VAGINITIS BACTERIAL [None]
  - POST PROCEDURAL HAEMORRHAGE [None]
  - DEVICE DISLOCATION [None]
  - ABDOMINAL DISCOMFORT [None]
  - OVARIAN CYST [None]
  - DEVICE EXPULSION [None]
  - WEIGHT INCREASED [None]
  - NO ADVERSE EVENT [None]
